FAERS Safety Report 13673377 (Version 1)
Quarter: 2017Q2

REPORT INFORMATION
  Report Type: Spontaneous
  Country: US (occurrence: US)
  Receive Date: 20170621
  Receipt Date: 20170621
  Transmission Date: 20170830
  Serious: No
  Sender: FDA-Public Use
  Company Number: US-TEVA-669147USA

PATIENT
  Age: 13 Year
  Sex: Male
  Weight: 37.68 kg

DRUGS (1)
  1. ANASTROZOLE. [Suspect]
     Active Substance: ANASTROZOLE
     Indication: OESTROGEN THERAPY
     Route: 048
     Dates: start: 20160507, end: 20160524

REACTIONS (2)
  - Dyskinesia [Recovering/Resolving]
  - Product use in unapproved indication [Unknown]
